FAERS Safety Report 9539613 (Version 2)
Quarter: 2016Q1

REPORT INFORMATION
  Report Type: Spontaneous
  Country: CA (occurrence: CA)
  Receive Date: 20130920
  Receipt Date: 20160115
  Transmission Date: 20160526
  Serious: Yes (Life-Threatening, Hospitalization, Other)
  Sender: FDA-Public Use
  Company Number: CA-009507513-1309CAN009050

PATIENT
  Age: 28 Year
  Sex: Female
  Weight: 66.67 kg

DRUGS (2)
  1. NUVARING [Suspect]
     Active Substance: ETHINYL ESTRADIOL\ETONOGESTREL
     Indication: MENORRHAGIA
     Dosage: 1 DF, QM ONCE A MONTH WITHOUT STOPPING.
     Route: 067
     Dates: start: 20120826, end: 20120921
  2. ANAPROX [Concomitant]
     Active Substance: NAPROXEN SODIUM
     Indication: MIGRAINE
     Dosage: 275 MG, BID
     Route: 048

REACTIONS (5)
  - Pulmonary embolism [Unknown]
  - Arrhythmia [Unknown]
  - Drug administration error [Unknown]
  - Thrombophlebitis [Unknown]
  - Incorrect drug administration duration [Unknown]

NARRATIVE: CASE EVENT DATE: 20120826
